FAERS Safety Report 9348736 (Version 1)
Quarter: 2013Q2

REPORT INFORMATION
  Report Type: Spontaneous
  Country: FR (occurrence: FR)
  Receive Date: 20130614
  Receipt Date: 20130614
  Transmission Date: 20140414
  Serious: Yes (Hospitalization, Other)
  Sender: FDA-Public Use
  Company Number: FR-PFIZER INC-2013173326

PATIENT
  Age: 75 Year
  Sex: Male

DRUGS (6)
  1. TAHOR [Suspect]
     Dosage: 20 MG, UNK
     Route: 048
     Dates: end: 20120823
  2. FUCIDINE [Interacting]
     Indication: INFECTION PROPHYLAXIS
     Dosage: 1.5 G, 1X/DAY
     Route: 048
     Dates: start: 20120723, end: 20120823
  3. KARDEGIC [Concomitant]
     Dosage: 160 MG, UNK
  4. MONOTILDIEM LP [Concomitant]
     Dosage: 200 MG, UNK
  5. MICARDIS [Concomitant]
     Dosage: 80 MG, UNK
  6. OFLOCET [Concomitant]
     Indication: INFECTION PROPHYLAXIS
     Dosage: UNK
     Dates: start: 20120723

REACTIONS (11)
  - Drug interaction [Recovered/Resolved]
  - Rhabdomyolysis [Recovered/Resolved]
  - Abdominal pain [Unknown]
  - Vomiting [Unknown]
  - Anuria [Unknown]
  - Nausea [Unknown]
  - Prerenal failure [Recovered/Resolved]
  - Arthropathy [Unknown]
  - Impaired healing [Unknown]
  - Inflammation [Unknown]
  - Infection [Unknown]
